FAERS Safety Report 7669614-X (Version None)
Quarter: 2011Q3

REPORT INFORMATION
  Report Type: 
  Country: None (occurrence: None)
  Receive Date: 20110808
  Receipt Date: 20110801
  Transmission Date: 20111222
  Serious: Yes (Hospitalization)
  Sender: FDA-Public Use
  Company Number: US-GILEAD-2011-0042022

PATIENT
  Sex: Female

DRUGS (1)
  1. LETAIRIS [Suspect]
     Indication: PULMONARY ARTERIAL HYPERTENSION
     Route: 048
     Dates: start: 20090105

REACTIONS (4)
  - FLUID OVERLOAD [None]
  - CHEST PAIN [None]
  - BLOOD POTASSIUM DECREASED [None]
  - PULMONARY HYPERTENSION [None]
